FAERS Safety Report 5912313-2 (Version None)
Quarter: 2008Q4

REPORT INFORMATION
  Report Type: 
  Country: None (occurrence: None)
  Receive Date: 20081008
  Receipt Date: 20080930
  Transmission Date: 20090506
  Serious: Yes (Other)
  Sender: FDA-Public Use
  Company Number: US-GILEAD-2007-0011812

PATIENT
  Sex: Male

DRUGS (2)
  1. ATRIPLA [Suspect]
     Indication: HIV INFECTION
     Dates: start: 20070101
  2. TRUVADA [Suspect]
     Indication: HIV INFECTION

REACTIONS (2)
  - LIPOHYPERTROPHY [None]
  - PARANOIA [None]
